FAERS Safety Report 5891809-6 (Version None)
Quarter: 2008Q3

REPORT INFORMATION
  Report Type: 
  Country: None (occurrence: None)
  Receive Date: 20080922
  Receipt Date: 20080916
  Transmission Date: 20090109
  Serious: Yes (Other)
  Sender: FDA-Public Use
  Company Number: DK-ASTRAZENECA-2008SE04155

PATIENT
  Age: 16016 Day
  Sex: Female
  Weight: 64 kg

DRUGS (4)
  1. ESOPRAL [Suspect]
     Indication: DYSPEPSIA
     Route: 048
     Dates: start: 20080813, end: 20080828
  2. KLORZOXAZONE [Concomitant]
     Indication: MUSCLE SPASMS
     Route: 048
     Dates: end: 20080827
  3. IBUPROFEN [Concomitant]
     Indication: PAIN
     Route: 048
     Dates: end: 20080827
  4. DISCUS FLIXOTIDE [Concomitant]
     Indication: ASTHMA
     Route: 055

REACTIONS (7)
  - ABDOMINAL PAIN [None]
  - DIARRHOEA [None]
  - DISCOMFORT [None]
  - DIZZINESS [None]
  - DYSGEUSIA [None]
  - NAUSEA [None]
  - VISION BLURRED [None]
